FAERS Safety Report 22053807 (Version 2)
Quarter: 2023Q1

REPORT INFORMATION
  Report Type: Report from Study
  Country: US (occurrence: US)
  Receive Date: 20230302
  Receipt Date: 20230321
  Transmission Date: 20230417
  Serious: Yes (Hospitalization)
  Sender: FDA-Public Use
  Company Number: US-PFIZER INC-PV202200076730

PATIENT
  Age: 77 Year
  Sex: Female

DRUGS (3)
  1. IBRANCE [Suspect]
     Active Substance: PALBOCICLIB
     Indication: Breast cancer female
     Dosage: 100 MG, CYCLIC (1 CAPSULE 1 TIME A DAY ON DAYS 1 TO 21 OF A 28 DAY CYCLE)
     Route: 048
     Dates: start: 20220930, end: 20221021
  2. IBRANCE [Suspect]
     Active Substance: PALBOCICLIB
     Dosage: 100 MG, CYCLIC (1 CAPSULE 1 TIME A DAY ON DAYS 1 TO 21 OF A 28 DAY CYCLE)
     Route: 048
     Dates: start: 20230123, end: 20230206
  3. FASLODEX [Concomitant]
     Active Substance: FULVESTRANT
     Dosage: UNK

REACTIONS (8)
  - White blood cell count decreased [Unknown]
  - Full blood count decreased [Unknown]
  - Haematochezia [Unknown]
  - Haemoglobin decreased [Unknown]
  - Pulmonary embolism [Unknown]
  - Thrombosis [Unknown]
  - Nausea [Unknown]
  - Laboratory test abnormal [Unknown]

NARRATIVE: CASE EVENT DATE: 20220101
